FAERS Safety Report 5595665-5 (Version None)
Quarter: 2008Q1

REPORT INFORMATION
  Report Type: 
  Country: None (occurrence: None)
  Receive Date: 20080118
  Receipt Date: 20080111
  Transmission Date: 20080703
  Serious: Yes (Death, Hospitalization, Disabling)
  Sender: FDA-Public Use
  Company Number: HQWYE519005SEP03

PATIENT
  Sex: Female
  Weight: 60.9 kg

DRUGS (3)
  1. PREMPRO [Suspect]
     Indication: HORMONE REPLACEMENT THERAPY
     Dosage: UNKNOWN
     Route: 048
     Dates: start: 20020301, end: 20020801
  2. PROVERA [Suspect]
  3. PREMARIN [Suspect]

REACTIONS (1)
  - CEREBRAL HAEMORRHAGE [None]
